FAERS Safety Report 26141140 (Version 1)
Quarter: 2025Q4

REPORT INFORMATION
  Report Type: Spontaneous
  Country: US (occurrence: US)
  Receive Date: 20251210
  Receipt Date: 20251210
  Transmission Date: 20260117
  Serious: No
  Sender: PFIZER
  Company Number: US-PFIZER INC-PV202400024008

PATIENT
  Age: 74 Year
  Sex: Male
  Weight: 90.794 kg

DRUGS (3)
  1. BOSULIF [Suspect]
     Active Substance: BOSUTINIB MONOHYDRATE
     Indication: Chronic myeloid leukaemia
     Dosage: 200 MG, 1X/DAY (100 MG, TAKE 2 TABLETS ONCE DAILY)
     Route: 048
     Dates: start: 202404
  2. BOSULIF [Suspect]
     Active Substance: BOSUTINIB MONOHYDRATE
     Dosage: 400 MG, 1 TABLET ONCE DAILY
     Route: 048
     Dates: start: 202407
  3. BOSULIF [Suspect]
     Active Substance: BOSUTINIB MONOHYDRATE
     Dosage: 100 MG

REACTIONS (2)
  - Diarrhoea [Unknown]
  - Product dispensing error [Unknown]
